FAERS Safety Report 7161792-4 (Version None)
Quarter: 2010Q4

REPORT INFORMATION
  Report Type: 
  Country: None (occurrence: None)
  Receive Date: 20101201
  Receipt Date: 20101124
  Transmission Date: 20110411
  Serious: Yes (Other)
  Sender: FDA-Public Use
  Company Number: BR-GDP-10407928

PATIENT
  Sex: Female
  Weight: 54 kg

DRUGS (3)
  1. EPIDUO [Suspect]
     Indication: ACNE
     Dosage: 1 DF QD TOPICAL, 1 DF QD TOPICAL
     Route: 061
     Dates: start: 20100413, end: 20100419
  2. EPIDUO [Suspect]
     Indication: ACNE
     Dosage: 1 DF QD TOPICAL, 1 DF QD TOPICAL
     Route: 061
     Dates: start: 20100423, end: 20100425
  3. CIPROFLAXACIN [Concomitant]

REACTIONS (5)
  - ABORTION SPONTANEOUS [None]
  - DRUG EXPOSURE DURING PREGNANCY [None]
  - ERYTHEMA [None]
  - PREGNANCY [None]
  - SKIN BURNING SENSATION [None]
